FAERS Safety Report 5754369-6 (Version None)
Quarter: 2008Q2

REPORT INFORMATION
  Report Type: 
  Country: None (occurrence: None)
  Receive Date: 20080530
  Receipt Date: 20080521
  Transmission Date: 20081010
  Serious: Yes (Hospitalization, Disabling, Other)
  Sender: FDA-Public Use
  Company Number: JP-PFIZER INC-2008014540

PATIENT
  Sex: Female
  Weight: 59 kg

DRUGS (12)
  1. SU-011,248 [Suspect]
     Indication: GASTRIC CANCER
     Route: 048
     Dates: start: 20071121, end: 20080214
  2. TEGAFUR/GIMERACIL/OTERACIL POTASSIUM [Suspect]
     Indication: GASTRIC CANCER
     Route: 048
     Dates: start: 20071120, end: 20080214
  3. CISPLATIN [Suspect]
     Indication: GASTRIC CANCER
     Route: 042
     Dates: start: 20071120, end: 20080206
  4. RED BLOOD CELLS [Concomitant]
     Dates: start: 20080205, end: 20080205
  5. SOLDEM 3A [Concomitant]
     Dates: start: 20080206, end: 20080208
  6. GLUCOSE [Concomitant]
     Dates: start: 20080206, end: 20080208
  7. ELECTROLYTE SOLUTIONS [Concomitant]
     Dates: start: 20080206, end: 20080208
  8. MANNITOL [Concomitant]
     Dates: start: 20080206, end: 20080208
  9. GRANISETRON  HCL [Concomitant]
     Dates: start: 20080206, end: 20080206
  10. DEXAMETHASONE SODIUM PHOSPHATE [Concomitant]
     Dates: start: 20080206, end: 20080208
  11. METOCLOPRAMIDE HYDROCHLORIDE [Concomitant]
     Dates: start: 20080207, end: 20080208
  12. UREA [Concomitant]
     Route: 061
     Dates: start: 20080207, end: 20080214

REACTIONS (1)
  - CEREBRAL INFARCTION [None]
